FAERS Safety Report 22008825 (Version 1)
Quarter: 2023Q1

REPORT INFORMATION
  Report Type: Report from Study
  Country: BR (occurrence: BR)
  Receive Date: 20230219
  Receipt Date: 20230219
  Transmission Date: 20230418
  Serious: Yes (Hospitalization)
  Sender: FDA-Public Use
  Company Number: BR-BIOGEN-2023BI01188175

PATIENT
  Age: 24 Year
  Sex: Female
  Weight: 65.1 kg

DRUGS (3)
  1. TECFIDERA [Suspect]
     Active Substance: DIMETHYL FUMARATE
     Indication: Multiple sclerosis
     Route: 050
     Dates: start: 202207, end: 20221213
  2. VITAMIN D [Concomitant]
     Active Substance: VITAMIN D NOS
     Indication: Supplementation therapy
     Route: 050
  3. Vitamin complex [Concomitant]
     Indication: Vitamin supplementation
     Route: 050
     Dates: start: 202209

REACTIONS (2)
  - Multiple sclerosis relapse [Recovered/Resolved]
  - Multiple sclerosis [Not Recovered/Not Resolved]

NARRATIVE: CASE EVENT DATE: 20220901
